FAERS Safety Report 11766235 (Version 1)
Quarter: 2015Q4

REPORT INFORMATION
  Report Type: Spontaneous
  Country: US (occurrence: US)
  Receive Date: 20151123
  Receipt Date: 20151123
  Transmission Date: 20160304
  Serious: Yes (Hospitalization, Other)
  Sender: FDA-Public Use
  Company Number: US-JNJFOC-20151111300

PATIENT
  Age: 48 Year
  Sex: Male

DRUGS (2)
  1. ACETAMINOPHEN. [Suspect]
     Active Substance: ACETAMINOPHEN
     Route: 065
  2. ACETAMINOPHEN. [Suspect]
     Active Substance: ACETAMINOPHEN
     Indication: PRODUCT USED FOR UNKNOWN INDICATION
     Route: 065

REACTIONS (10)
  - Tachycardia [Recovering/Resolving]
  - Liver injury [Recovering/Resolving]
  - Multi-organ failure [Recovering/Resolving]
  - Disseminated intravascular coagulation [Recovering/Resolving]
  - Hypoxia [Recovering/Resolving]
  - Transaminases increased [Recovering/Resolving]
  - Lactic acidosis [Recovering/Resolving]
  - Ejection fraction decreased [Recovering/Resolving]
  - Toxicity to various agents [Recovering/Resolving]
  - Hypotension [Recovering/Resolving]
